FAERS Safety Report 9346438 (Version 3)
Quarter: 2013Q3

REPORT INFORMATION
  Report Type: Spontaneous
  Country: ES (occurrence: ES)
  Receive Date: 20130613
  Receipt Date: 20130926
  Transmission Date: 20140515
  Serious: Yes (Other)
  Sender: FDA-Public Use
  Company Number: ES-009507513-1306ESP003133

PATIENT
  Age: 60 Year
  Sex: Male
  Weight: 65 kg

DRUGS (8)
  1. VICTRELIS [Suspect]
     Indication: HEPATIC CIRRHOSIS
     Dosage: 12 TABLETS, DAILY
     Route: 048
     Dates: start: 20120620, end: 20120808
  2. VICTRELIS [Suspect]
     Indication: HEPATITIS C
  3. RIBAVIRIN [Suspect]
     Indication: HEPATITIS C
     Dosage: 800 MG, DAILY
     Route: 048
     Dates: start: 20120527, end: 20120925
  4. PEGASYS [Suspect]
     Indication: HEPATITIS C
     Dosage: 180 MICROGRAM,WEEKLY
     Route: 042
     Dates: start: 20120527, end: 20120925
  5. PEGASYS [Suspect]
     Indication: HEPATIC CIRRHOSIS
  6. IDEOS [Concomitant]
     Dosage: UNK
  7. NEORECORMON [Concomitant]
     Dosage: 30000 IU, WEEKLY
     Dates: start: 20120713, end: 20121010
  8. ACFOL [Concomitant]
     Dosage: 1 TABLET/DAY
     Dates: start: 20120713, end: 20121010

REACTIONS (3)
  - Pancytopenia [Recovering/Resolving]
  - Therapeutic embolisation [Unknown]
  - Asthenia [Recovered/Resolved]
